FAERS Safety Report 12944392 (Version 1)
Quarter: 2016Q4

REPORT INFORMATION
  Report Type: Spontaneous
  Country: US (occurrence: US)
  Receive Date: 20161115
  Receipt Date: 20161115
  Transmission Date: 20170207
  Serious: Yes (Other)
  Sender: FDA-Public Use
  Company Number: US-OTSUKA-2016_026117

PATIENT
  Sex: Male

DRUGS (3)
  1. VITAMIN B [Concomitant]
     Active Substance: VITAMIN B
     Indication: PRODUCT USED FOR UNKNOWN INDICATION
     Dosage: UNK
     Route: 065
  2. REXULTI [Suspect]
     Active Substance: BREXPIPRAZOLE
     Indication: BIPOLAR II DISORDER
     Dosage: 1MG, QD
     Route: 065
     Dates: start: 201611, end: 20161104
  3. REXULTI [Suspect]
     Active Substance: BREXPIPRAZOLE
     Indication: MANIA
     Dosage: 0.5 MG, QD
     Route: 065
     Dates: start: 201610

REACTIONS (7)
  - Depression [Recovering/Resolving]
  - Social avoidant behaviour [Recovering/Resolving]
  - Product use issue [Unknown]
  - Drug ineffective [Unknown]
  - Suicidal ideation [Recovering/Resolving]
  - Drug dose omission [Unknown]
  - Personality change [Recovering/Resolving]
